FAERS Safety Report 7903845-6 (Version None)
Quarter: 2011Q4

REPORT INFORMATION
  Report Type: 
  Country: None (occurrence: None)
  Receive Date: 20111109
  Receipt Date: 20111103
  Transmission Date: 20120403
  Serious: Yes (Death, Life-Threatening, Hospitalization)
  Sender: FDA-Public Use
  Company Number: DE-BRISTOL-MYERS SQUIBB COMPANY-16032476

PATIENT
  Age: 66 Year
  Sex: Male
  Weight: 65 kg

DRUGS (3)
  1. CETUXIMAB [Suspect]
     Indication: OESOPHAGEAL ADENOCARCINOMA
     Route: 042
     Dates: start: 20110621
  2. CISPLATIN [Suspect]
     Indication: OESOPHAGEAL ADENOCARCINOMA
     Route: 042
     Dates: start: 20110621
  3. TAXOTERE [Suspect]
     Indication: OESOPHAGEAL ADENOCARCINOMA
     Route: 042
     Dates: start: 20110621

REACTIONS (16)
  - PERITONITIS BACTERIAL [None]
  - VOMITING [None]
  - OESOPHAGEAL CANDIDIASIS [None]
  - GENERAL PHYSICAL HEALTH DETERIORATION [None]
  - NAUSEA [None]
  - ENTERITIS INFECTIOUS [None]
  - CANCER PAIN [None]
  - ANAEMIA [None]
  - STAPHYLOCOCCAL SEPSIS [None]
  - PERITONEAL CANDIDIASIS [None]
  - HIATUS HERNIA, OBSTRUCTIVE [None]
  - PNEUMOTHORAX [None]
  - PLEURAL EFFUSION [None]
  - DEHYDRATION [None]
  - DIARRHOEA [None]
  - CACHEXIA [None]
